FAERS Safety Report 7590726-3 (Version None)
Quarter: 2011Q3

REPORT INFORMATION
  Report Type: 
  Country: None (occurrence: None)
  Receive Date: 20110705
  Receipt Date: 20110621
  Transmission Date: 20111222
  Serious: Yes (Hospitalization, Other)
  Sender: FDA-Public Use
  Company Number: PHHY2011TW48574

PATIENT
  Sex: Female

DRUGS (1)
  1. ZOLEDRONIC ACID [Suspect]
     Indication: OSTEOPOROSIS
     Dosage: 5 MG,
     Route: 042
     Dates: start: 20110516

REACTIONS (13)
  - ARTHRALGIA [None]
  - MUSCULAR WEAKNESS [None]
  - MALAISE [None]
  - VOMITING [None]
  - NASOPHARYNGITIS [None]
  - WEIGHT DECREASED [None]
  - NAUSEA [None]
  - GAIT DISTURBANCE [None]
  - C-REACTIVE PROTEIN INCREASED [None]
  - MYALGIA [None]
  - PYREXIA [None]
  - PAIN [None]
  - FATIGUE [None]
